FAERS Safety Report 6199449-9 (Version None)
Quarter: 2009Q2

REPORT INFORMATION
  Report Type: 
  Country: None (occurrence: None)
  Receive Date: 20090522
  Receipt Date: 20090511
  Transmission Date: 20091009
  Serious: Yes (Other)
  Sender: FDA-Public Use
  Company Number: JP-PFIZER INC-2009212947

PATIENT
  Age: 32 Year

DRUGS (4)
  1. AZITHROMYCIN [Suspect]
     Indication: SINUSITIS
     Dosage: 2 G, 1X/DAY
     Route: 048
     Dates: start: 20090509, end: 20090509
  2. SINISEIHAITO [Suspect]
     Dosage: UNK
     Route: 048
     Dates: start: 20090409, end: 20090501
  3. MUCODYNE [Concomitant]
     Dosage: 500 MG, 3X/DAY
     Route: 048
     Dates: start: 20090409
  4. BIOFERMIN R [Concomitant]
     Dosage: 3 G, 1X/DAY
     Route: 048
     Dates: start: 20090409

REACTIONS (3)
  - DIARRHOEA [None]
  - LOSS OF CONSCIOUSNESS [None]
  - RASH [None]
